FAERS Safety Report 18115536 (Version 1)
Quarter: 2020Q3

REPORT INFORMATION
  Report Type: Spontaneous
  Country: US (occurrence: US)
  Receive Date: 20200805
  Receipt Date: 20200805
  Transmission Date: 20201103
  Serious: Yes (Other)
  Sender: FDA-Public Use
  Company Number: US-PFIZER INC-2020288282

PATIENT
  Sex: Female

DRUGS (1)
  1. METHOTREXATE SODIUM. [Suspect]
     Active Substance: METHOTREXATE SODIUM
     Indication: JUVENILE IDIOPATHIC ARTHRITIS
     Dosage: A SHOT A WEEK

REACTIONS (11)
  - Emotional disorder [Unknown]
  - Injection site pain [Unknown]
  - Asthma [Unknown]
  - Colitis ulcerative [Unknown]
  - Condition aggravated [Unknown]
  - Off label use [Unknown]
  - Pain [Unknown]
  - Drug ineffective for unapproved indication [Unknown]
  - Fatigue [Unknown]
  - Uveitis [Unknown]
  - Anxiety [Unknown]
